FAERS Safety Report 5049811-2 (Version None)
Quarter: 2006Q3

REPORT INFORMATION
  Report Type: 
  Country: None (occurrence: None)
  Receive Date: 20060712
  Receipt Date: 20060630
  Transmission Date: 20061208
  Serious: Yes (Death, Hospitalization)
  Sender: FDA-Public Use
  Company Number: NL-MERCK-0607NLD00006

PATIENT
  Age: 29 Year
  Sex: Male

DRUGS (3)
  1. CANCIDAS [Suspect]
     Route: 041
  2. CANCIDAS [Suspect]
     Route: 041
  3. CYCLOSPORINE [Concomitant]
     Route: 065

REACTIONS (3)
  - ASPERGILLOSIS [None]
  - MULTI-ORGAN FAILURE [None]
  - RESPIRATORY FAILURE [None]
